FAERS Safety Report 4579526-6 (Version None)
Quarter: 2005Q1

REPORT INFORMATION
  Report Type: 
  Country: None (occurrence: None)
  Receive Date: 20050210
  Receipt Date: 20050126
  Transmission Date: 20050727
  Serious: Yes (Death)
  Sender: FDA-Public Use
  Company Number: 2005S1000155

PATIENT
  Age: 53 Year
  Sex: Female

DRUGS (10)
  1. CLOZAPINE [Suspect]
     Indication: SCHIZOPHRENIA
     Dosage: 25 MG AM AND 75 MG HS, ORAL
     Route: 048
  2. ATORVASTATIN [Concomitant]
  3. VALPROIC ACID [Concomitant]
  4. VITAMIN B-12 [Concomitant]
  5. POTASSIUM CHLORIDE [Concomitant]
  6. OMEPRAZOLE [Concomitant]
  7. CALCIUM WITH VITAMIN D [Concomitant]
  8. MULTI-VITAMIN [Concomitant]
  9. LORAZEPAM [Concomitant]
  10. FOLIC ACID [Concomitant]

REACTIONS (1)
  - MULTI-ORGAN FAILURE [None]
